FAERS Safety Report 19634185 (Version 2)
Quarter: 2021Q3

REPORT INFORMATION
  Report Type: Report from Study
  Country: None (occurrence: US)
  Receive Date: 20210730
  Receipt Date: 20210812
  Transmission Date: 20211014
  Serious: Yes (Hospitalization)
  Sender: FDA-Public Use
  Company Number: US-ABBVIE-21K-163-4013195-00

PATIENT
  Sex: Male
  Weight: 124.85 kg

DRUGS (1)
  1. HUMIRA [Suspect]
     Active Substance: ADALIMUMAB
     Indication: PSORIASIS
     Dosage: CITRATE FREE
     Route: 058
     Dates: start: 202106

REACTIONS (2)
  - Dehydration [Recovered/Resolved]
  - Suicidal ideation [Unknown]
